FAERS Safety Report 20112511 (Version 1)
Quarter: 2021Q4

REPORT INFORMATION
  Report Type: Spontaneous
  Country: US (occurrence: US)
  Receive Date: 20211125
  Receipt Date: 20211125
  Transmission Date: 20220303
  Serious: No
  Sender: FDA-Public Use
  Company Number: US-BTGSP-US-BTGSP-21-0118

PATIENT
  Age: 2 Year
  Sex: Male

DRUGS (2)
  1. CROFAB [Suspect]
     Active Substance: CROTALIDAE POLYVALENT IMMUNE FAB (OVINE)
     Indication: Snake bite
     Dosage: 4 VIALS
     Route: 065
  2. UNSPECIFIED INGREDIENT [Concomitant]
     Active Substance: UNSPECIFIED INGREDIENT
     Indication: Snake bite
     Dosage: 3 VIALS
     Route: 065

REACTIONS (1)
  - Off label use [Unknown]
